FAERS Safety Report 25703962 (Version 1)
Quarter: 2025Q3

REPORT INFORMATION
  Report Type: Spontaneous
  Country: US (occurrence: US)
  Receive Date: 20250820
  Receipt Date: 20250820
  Transmission Date: 20251020
  Serious: Yes (Other)
  Sender: BLUEPRINT MEDICINES
  Company Number: US-Blueprint Medicines Corporation-2025-AER-01792

PATIENT
  Age: 32 Year
  Sex: Female

DRUGS (1)
  1. AYVAKIT [Suspect]
     Active Substance: AVAPRITINIB
     Indication: Mastocytoma
     Route: 065

REACTIONS (5)
  - Renal impairment [Unknown]
  - Lethargy [Unknown]
  - Fatigue [Unknown]
  - Blood pressure diastolic decreased [Unknown]
  - Dizziness postural [Unknown]

NARRATIVE: CASE EVENT DATE: 20250701
